FAERS Safety Report 7306358-8 (Version None)
Quarter: 2011Q1

REPORT INFORMATION
  Report Type: 
  Country: None (occurrence: None)
  Receive Date: 20110222
  Receipt Date: 20110214
  Transmission Date: 20110831
  Serious: Yes (Hospitalization, Other)
  Sender: FDA-Public Use
  Company Number: US-B.I. PHARMACEUTICALS,INC./RIDGEFIELD-2011-BP-02946BP

PATIENT
  Sex: Female

DRUGS (1)
  1. CATAPRES [Suspect]

REACTIONS (5)
  - GLAUCOMA [None]
  - HYPERTENSION [None]
  - THYROID DISORDER [None]
  - PARATHYROID DISORDER [None]
  - DRUG INEFFECTIVE [None]
